FAERS Safety Report 14600944 (Version 2)
Quarter: 2018Q1

REPORT INFORMATION
  Report Type: Spontaneous
  Country: US (occurrence: US)
  Receive Date: 20180305
  Receipt Date: 20180309
  Transmission Date: 20180509
  Serious: Yes (Hospitalization)
  Sender: FDA-Public Use
  Company Number: US-ELI_LILLY_AND_COMPANY-US201802012104

PATIENT
  Sex: Male

DRUGS (3)
  1. ADCIRCA [Suspect]
     Active Substance: TADALAFIL
     Indication: PRODUCT USED FOR UNKNOWN INDICATION
     Dosage: 2 DF, DAILY
     Route: 065
  2. ADCIRCA [Suspect]
     Active Substance: TADALAFIL
     Dosage: 2 DF, DAILY
     Route: 065
  3. ADCIRCA [Suspect]
     Active Substance: TADALAFIL
     Dosage: 4 DF, DAILY
     Route: 065

REACTIONS (2)
  - Respiration abnormal [Unknown]
  - Overdose [Recovered/Resolved]
